FAERS Safety Report 22040254 (Version 13)
Quarter: 2025Q4

REPORT INFORMATION
  Report Type: Spontaneous
  Country: US (occurrence: US)
  Receive Date: 20230227
  Receipt Date: 20251112
  Transmission Date: 20260117
  Serious: Yes (Hospitalization, Other)
  Sender: PFIZER
  Company Number: US-PFIZER INC-202200726272

PATIENT
  Age: 70 Year
  Sex: Female
  Weight: 70.748 kg

DRUGS (8)
  1. IBRANCE [Suspect]
     Active Substance: PALBOCICLIB
     Indication: Breast cancer female
     Dosage: 125 3WEEKS ON 1WEEK OFF
     Dates: start: 202201
  2. IBRANCE [Suspect]
     Active Substance: PALBOCICLIB
     Indication: Breast cancer metastatic
     Dosage: TAKE 1 TABLET DAYS 1-21 OF EACH 28 DAY CYCLE
     Route: 048
     Dates: start: 20220321
  3. IBRANCE [Suspect]
     Active Substance: PALBOCICLIB
     Dosage: 125 MG, EVERY DAY, ON DAYS 1-21 OF EACH 28-DAY CYCLE. TAKE WHOLE WITH WATER, WITH OR WITHOUT FOOD
     Route: 048
     Dates: start: 20230616
  4. IBRANCE [Suspect]
     Active Substance: PALBOCICLIB
     Dosage: 125 MG
  5. FASLODEX [Concomitant]
     Active Substance: FULVESTRANT
     Dosage: UNK, MONTHLY
     Dates: start: 202201
  6. FASLODEX [Concomitant]
     Active Substance: FULVESTRANT
     Dosage: UNK
     Dates: start: 20230616
  7. XGEVA [Concomitant]
     Active Substance: DENOSUMAB
     Dosage: UNK, MONTHLY
     Dates: start: 202201
  8. XGEVA [Concomitant]
     Active Substance: DENOSUMAB
     Dosage: UNK
     Dates: start: 20230616

REACTIONS (11)
  - Gait disturbance [Not Recovered/Not Resolved]
  - Gallbladder rupture [Unknown]
  - Intestinal resection [Unknown]
  - Appendicitis [Unknown]
  - Bladder disorder [Unknown]
  - Fistula [Unknown]
  - Hernia [Unknown]
  - Breast cancer female [Unknown]
  - Breast cancer metastatic [Unknown]
  - Malignant neoplasm progression [Unknown]
  - COVID-19 [Recovered/Resolved]

NARRATIVE: CASE EVENT DATE: 20250101
